FAERS Safety Report 9292212 (Version 1)
Quarter: 2013Q2

REPORT INFORMATION
  Report Type: Spontaneous
  Country: CN (occurrence: CN)
  Receive Date: 20130516
  Receipt Date: 20130516
  Transmission Date: 20140414
  Serious: Yes (Other)
  Sender: FDA-Public Use
  Company Number: CN-009507513-1305CHN009097

PATIENT
  Age: 32 Year
  Sex: Male

DRUGS (4)
  1. TEMOZOLOMIDE [Suspect]
     Indication: LUNG ADENOCARCINOMA METASTATIC
     Dosage: UNK
     Route: 048
     Dates: start: 20111103, end: 20111118
  2. TEMOZOLOMIDE [Suspect]
     Indication: METASTASES TO CENTRAL NERVOUS SYSTEM
     Dosage: UNK
     Route: 048
     Dates: start: 20111206, end: 20111210
  3. TARCEVA [Concomitant]
     Indication: LUNG ADENOCARCINOMA METASTATIC
     Dosage: 150 MG, QD
     Route: 048
     Dates: start: 20111119, end: 20111201
  4. TARCEVA [Concomitant]
     Indication: METASTASES TO CENTRAL NERVOUS SYSTEM

REACTIONS (4)
  - Epilepsy [Unknown]
  - Epilepsy [Recovering/Resolving]
  - Rash [Recovering/Resolving]
  - Drug ineffective [Unknown]
